FAERS Safety Report 4976385-4 (Version None)
Quarter: 2006Q2

REPORT INFORMATION
  Report Type: 
  Country: None (occurrence: None)
  Receive Date: 20060412
  Receipt Date: 20060327
  Transmission Date: 20061013
  Serious: No
  Sender: FDA-Public Use
  Company Number: US017216

PATIENT
  Age: 15 Month
  Sex: Female

DRUGS (1)
  1. ACTIQ [Suspect]
     Dosage: 40 UG ONCE BUCCAL
     Route: 002
     Dates: start: 20040106, end: 20040106

REACTIONS (1)
  - ACCIDENTAL DRUG INTAKE BY CHILD [None]
